FAERS Safety Report 9217801 (Version 1)
Quarter: 2013Q2

REPORT INFORMATION
  Report Type: Spontaneous
  Country: US (occurrence: US)
  Receive Date: 20130408
  Receipt Date: 20130408
  Transmission Date: 20140414
  Serious: No
  Sender: FDA-Public Use
  Company Number: US-PFIZER INC-2013106010

PATIENT
  Age: 69 Year
  Sex: Male

DRUGS (2)
  1. LEVOXYL [Suspect]
     Indication: HORMONE THERAPY
     Dosage: 0.137 MG, 1X/DAY
  2. PROTOPIC [Concomitant]
     Indication: ECZEMA
     Dosage: 0.1 %, 2X/DAY

REACTIONS (2)
  - Hypersensitivity [Not Recovered/Not Resolved]
  - Drug ineffective [Unknown]
